FAERS Safety Report 5707613-5 (Version None)
Quarter: 2008Q2

REPORT INFORMATION
  Report Type: 
  Country: None (occurrence: None)
  Receive Date: 20080416
  Receipt Date: 20080404
  Transmission Date: 20081010
  Serious: Yes (Other)
  Sender: FDA-Public Use
  Company Number: US-PFIZER INC-2008016226

PATIENT
  Sex: Male
  Weight: 86.2 kg

DRUGS (15)
  1. CHANTIX [Suspect]
     Indication: SMOKING CESSATION THERAPY
     Route: 048
     Dates: start: 20070907, end: 20071101
  2. PROZAC [Interacting]
     Indication: DEPRESSION
  3. PROZAC [Interacting]
     Indication: SEDATION
  4. GLYCERYL TRINITRATE [Concomitant]
  5. OMEGA-3 MARINE TRIGLYCERIDES [Concomitant]
  6. PLAVIX [Concomitant]
  7. ACETYLSALICYLIC ACID SRT [Concomitant]
  8. LISINOPRIL [Concomitant]
  9. TRIAMTERENE [Concomitant]
  10. OMEPRAZOLE [Concomitant]
  11. ATENOLOL [Concomitant]
  12. SIMVASTATIN [Concomitant]
  13. VICODIN [Concomitant]
  14. XANAX [Concomitant]
  15. REQUIP [Concomitant]

REACTIONS (10)
  - ABNORMAL DREAMS [None]
  - AGGRESSION [None]
  - DRUG INTERACTION [None]
  - FEELINGS OF WORTHLESSNESS [None]
  - HYPERHIDROSIS [None]
  - IMPRISONMENT [None]
  - INFLUENZA [None]
  - MORBID THOUGHTS [None]
  - SUICIDAL IDEATION [None]
  - THINKING ABNORMAL [None]
